FAERS Safety Report 13301820 (Version 2)
Quarter: 2017Q1

REPORT INFORMATION
  Report Type: Spontaneous
  Country: IN (occurrence: IN)
  Receive Date: 20170307
  Receipt Date: 20170316
  Transmission Date: 20170428
  Serious: Yes (Other)
  Sender: FDA-Public Use
  Company Number: IN-BRISTOL-MYERS SQUIBB COMPANY-BMS-2017-017466

PATIENT
  Age: 55 Year
  Sex: Male

DRUGS (1)
  1. OPDYTA [Suspect]
     Active Substance: NIVOLUMAB
     Indication: NON-SMALL CELL LUNG CANCER
     Dosage: 240 MG, Q2WK
     Route: 042
     Dates: start: 20161130, end: 20170220

REACTIONS (2)
  - Pyrexia [Unknown]
  - Infection [Unknown]
